FAERS Safety Report 25464018 (Version 1)
Quarter: 2025Q2

REPORT INFORMATION
  Report Type: Spontaneous
  Country: CN (occurrence: CN)
  Receive Date: 20250621
  Receipt Date: 20250621
  Transmission Date: 20250717
  Serious: Yes (Hospitalization)
  Sender: ACCORD
  Company Number: None

PATIENT
  Age: 39 Year
  Sex: Female

DRUGS (5)
  1. TRASTUZUMAB [Suspect]
     Active Substance: TRASTUZUMAB
     Indication: Breast cancer
     Dosage: STRENGTH: 150  MILLIGRAM, QD, IV DRIP
     Route: 042
     Dates: start: 20250103, end: 20250103
  2. DOCETAXEL [Suspect]
     Active Substance: DOCETAXEL
     Indication: Breast cancer
     Dosage: 125 MILLIGRAM, QD, IV DRIP
     Route: 042
     Dates: start: 20250104, end: 20250104
  3. CARBOPLATIN [Suspect]
     Active Substance: CARBOPLATIN
     Indication: Breast cancer
     Dosage: 580 MILLIGRAM, QD,  IV DRIP
     Route: 042
     Dates: start: 20250104, end: 20250104
  4. PERTUZUMAB [Suspect]
     Active Substance: PERTUZUMAB
     Indication: Breast cancer
     Dosage: 420 MILLIGRAM, QD,  IV DRIP
     Route: 042
     Dates: start: 20250103, end: 20250103
  5. TRASTUZUMAB [Suspect]
     Active Substance: TRASTUZUMAB
     Indication: Breast cancer
     Dosage: STRENGTH: 60 MILLIGRAM, QD, IV DRIP
     Route: 042
     Dates: start: 20250103, end: 20250103

REACTIONS (1)
  - Myelosuppression [Recovering/Resolving]

NARRATIVE: CASE EVENT DATE: 20250105
